FAERS Safety Report 8302741 (Version 4)
Quarter: 2013Q4

REPORT INFORMATION
  Report Type: Spontaneous
  Country: US (occurrence: US)
  Receive Date: 20111220
  Receipt Date: 20131205
  Transmission Date: 20140711
  Serious: Yes (Death, Hospitalization)
  Sender: FDA-Public Use
  Company Number: US-GLAXOSMITHKLINE-A0930967A

PATIENT
  Age: 44 Year
  Sex: Male
  Weight: 139.5 kg

DRUGS (7)
  1. AVANDIA [Suspect]
     Indication: DIABETES MELLITUS
     Dosage: 4MG TWICE PER DAY
     Route: 048
     Dates: start: 20000530, end: 200711
  2. CRESTOR [Concomitant]
  3. INSULIN [Concomitant]
  4. DIOVAN [Concomitant]
  5. ANDROGEL [Concomitant]
  6. LYRICA [Concomitant]
  7. AMARYL [Concomitant]

REACTIONS (7)
  - Cardiac arrest [Fatal]
  - Brain injury [Fatal]
  - Cardiac failure congestive [Unknown]
  - Coronary artery disease [Unknown]
  - Ischaemic cardiomyopathy [Unknown]
  - Cerebrovascular accident [Unknown]
  - Cardiovascular disorder [Unknown]
